FAERS Safety Report 7647743-4 (Version None)
Quarter: 2011Q3

REPORT INFORMATION
  Report Type: 
  Country: None (occurrence: None)
  Receive Date: 20110801
  Receipt Date: 20110719
  Transmission Date: 20111222
  Serious: Yes (Hospitalization)
  Sender: FDA-Public Use
  Company Number: US-UCBSA-032293

PATIENT
  Sex: Female
  Weight: 105.23 kg

DRUGS (2)
  1. CIMZIA [Suspect]
     Route: 058
     Dates: start: 20090605
  2. CIMZIA [Suspect]
     Indication: CROHN'S DISEASE
     Route: 058
     Dates: start: 20080101, end: 20090605

REACTIONS (3)
  - FALL [None]
  - CLAVICLE FRACTURE [None]
  - JOINT INJURY [None]
